FAERS Safety Report 15068194 (Version 1)
Quarter: 2018Q2

REPORT INFORMATION
  Report Type: Report from Study
  Country: None (occurrence: US)
  Receive Date: 20180626
  Receipt Date: 20180626
  Transmission Date: 20180711
  Serious: Yes (Hospitalization)
  Sender: FDA-Public Use
  Company Number: US-BAUSCH-BL-2018-017189

PATIENT

DRUGS (50)
  1. VANCOMYCIN [Concomitant]
     Active Substance: VANCOMYCIN
     Route: 042
     Dates: start: 201206
  2. VANCOMYCIN [Concomitant]
     Active Substance: VANCOMYCIN
     Route: 042
     Dates: start: 201211
  3. VANCOMYCIN [Concomitant]
     Active Substance: VANCOMYCIN
     Route: 042
     Dates: start: 201301
  4. MEROPENEM. [Concomitant]
     Active Substance: MEROPENEM
     Route: 065
     Dates: start: 201301
  5. CIPROFLOXACIN. [Concomitant]
     Active Substance: CIPROFLOXACIN
     Indication: CLOSTRIDIUM DIFFICILE INFECTION
     Route: 065
     Dates: start: 201207
  6. CLINDAMYCIN. [Suspect]
     Active Substance: CLINDAMYCIN
     Indication: CLOSTRIDIUM DIFFICILE INFECTION
     Route: 065
     Dates: start: 201204
  7. CLINDAMYCIN. [Suspect]
     Active Substance: CLINDAMYCIN
     Route: 065
     Dates: start: 201210
  8. VANCOMYCIN [Concomitant]
     Active Substance: VANCOMYCIN
     Route: 042
     Dates: start: 201210
  9. VANCOMYCIN [Concomitant]
     Active Substance: VANCOMYCIN
     Route: 042
     Dates: start: 201302
  10. CEFTRIAXONE. [Concomitant]
     Active Substance: CEFTRIAXONE
     Route: 065
     Dates: start: 201302
  11. GENTAMICIN SULFATE. [Concomitant]
     Active Substance: GENTAMICIN SULFATE
     Route: 065
     Dates: start: 201212
  12. TRIMETHOPRIM/ SULFAMETHOXAZOLE [Concomitant]
     Active Substance: SULFAMETHOXAZOLE\TRIMETHOPRIM
     Route: 065
     Dates: start: 201207
  13. CIPROFLOXACIN. [Concomitant]
     Active Substance: CIPROFLOXACIN
     Route: 065
     Dates: start: 201302
  14. AMPICILLIN [Concomitant]
     Active Substance: AMPICILLIN
     Indication: CLOSTRIDIUM DIFFICILE INFECTION
     Route: 065
  15. CLINDAMYCIN. [Suspect]
     Active Substance: CLINDAMYCIN
     Route: 065
     Dates: start: 201302
  16. CEFTRIAXONE. [Concomitant]
     Active Substance: CEFTRIAXONE
     Route: 065
     Dates: start: 201204
  17. CEFTRIAXONE. [Concomitant]
     Active Substance: CEFTRIAXONE
     Route: 065
     Dates: start: 201206
  18. CEFTRIAXONE. [Concomitant]
     Active Substance: CEFTRIAXONE
     Route: 065
     Dates: start: 201210
  19. CEFTRIAXONE. [Concomitant]
     Active Substance: CEFTRIAXONE
     Route: 065
     Dates: start: 201301
  20. METRONIDAZOLE. [Concomitant]
     Active Substance: METRONIDAZOLE
     Route: 065
     Dates: start: 201207
  21. GENTAMICIN SULFATE. [Concomitant]
     Active Substance: GENTAMICIN SULFATE
     Route: 065
     Dates: start: 201302
  22. CEFAZOLIN [Concomitant]
     Active Substance: CEFAZOLIN
     Indication: CLOSTRIDIUM DIFFICILE INFECTION
     Route: 065
     Dates: start: 201204
  23. TRIMETHOPRIM/ SULFAMETHOXAZOLE [Concomitant]
     Active Substance: SULFAMETHOXAZOLE\TRIMETHOPRIM
     Indication: CLOSTRIDIUM DIFFICILE INFECTION
     Route: 065
     Dates: start: 201205
  24. TRIMETHOPRIM/ SULFAMETHOXAZOLE [Concomitant]
     Active Substance: SULFAMETHOXAZOLE\TRIMETHOPRIM
     Route: 065
     Dates: start: 201209
  25. CLINDAMYCIN. [Suspect]
     Active Substance: CLINDAMYCIN
     Route: 065
     Dates: start: 201208
  26. VANCOMYCIN [Concomitant]
     Active Substance: VANCOMYCIN
     Route: 042
     Dates: start: 201204
  27. VANCOMYCIN [Concomitant]
     Active Substance: VANCOMYCIN
     Route: 042
     Dates: start: 201212
  28. CEFTRIAXONE. [Concomitant]
     Active Substance: CEFTRIAXONE
     Indication: CLOSTRIDIUM DIFFICILE INFECTION
     Route: 065
     Dates: start: 201203
  29. TRIMETHOPRIM/ SULFAMETHOXAZOLE [Concomitant]
     Active Substance: SULFAMETHOXAZOLE\TRIMETHOPRIM
     Route: 065
     Dates: start: 201302
  30. GENTAMICIN SULFATE. [Concomitant]
     Active Substance: GENTAMICIN SULFATE
     Indication: CLOSTRIDIUM DIFFICILE INFECTION
     Route: 065
     Dates: start: 201205
  31. RIFAMPICIN [Concomitant]
     Active Substance: RIFAMPIN
     Route: 065
     Dates: start: 201212
  32. MEROPENEM. [Concomitant]
     Active Substance: MEROPENEM
     Indication: CLOSTRIDIUM DIFFICILE INFECTION
     Route: 065
     Dates: start: 201204
  33. MOXIFLOXACIN. [Concomitant]
     Active Substance: MOXIFLOXACIN
     Indication: CLOSTRIDIUM DIFFICILE INFECTION
     Route: 065
  34. CLINDAMYCIN. [Suspect]
     Active Substance: CLINDAMYCIN
     Route: 065
     Dates: start: 201209
  35. VANCOMYCIN [Concomitant]
     Active Substance: VANCOMYCIN
     Indication: CLOSTRIDIUM DIFFICILE INFECTION
     Route: 042
     Dates: start: 201203
  36. VANCOMYCIN [Concomitant]
     Active Substance: VANCOMYCIN
     Route: 042
     Dates: start: 201205
  37. CEFTRIAXONE. [Concomitant]
     Active Substance: CEFTRIAXONE
     Route: 065
     Dates: start: 201211
  38. CEFTRIAXONE. [Concomitant]
     Active Substance: CEFTRIAXONE
     Route: 065
     Dates: start: 201212
  39. MEROPENEM. [Concomitant]
     Active Substance: MEROPENEM
     Route: 065
     Dates: start: 201207
  40. MEROPENEM. [Concomitant]
     Active Substance: MEROPENEM
     Route: 065
     Dates: start: 201302
  41. RIFAXIMIN. [Suspect]
     Active Substance: RIFAXIMIN
     Indication: CLOSTRIDIUM DIFFICILE INFECTION
     Route: 065
  42. VANCOMYCIN [Concomitant]
     Active Substance: VANCOMYCIN
     Route: 042
     Dates: start: 201207
  43. CEFTRIAXONE. [Concomitant]
     Active Substance: CEFTRIAXONE
     Route: 065
     Dates: start: 201205
  44. GENTAMICIN SULFATE. [Concomitant]
     Active Substance: GENTAMICIN SULFATE
     Route: 065
     Dates: start: 201210
  45. GENTAMICIN SULFATE. [Concomitant]
     Active Substance: GENTAMICIN SULFATE
     Route: 065
     Dates: start: 201301
  46. VANCOMYCIN [Concomitant]
     Active Substance: VANCOMYCIN
     Route: 042
     Dates: start: 201208
  47. CEFTRIAXONE. [Concomitant]
     Active Substance: CEFTRIAXONE
     Route: 065
     Dates: start: 201208
  48. METRONIDAZOLE. [Concomitant]
     Active Substance: METRONIDAZOLE
     Indication: CLOSTRIDIUM DIFFICILE INFECTION
     Route: 065
     Dates: start: 201203
  49. METRONIDAZOLE. [Concomitant]
     Active Substance: METRONIDAZOLE
     Route: 065
     Dates: start: 201302
  50. RIFAMPICIN [Concomitant]
     Active Substance: RIFAMPIN
     Indication: CLOSTRIDIUM DIFFICILE INFECTION
     Route: 065
     Dates: start: 201211

REACTIONS (2)
  - Drug resistance [Unknown]
  - Clostridium difficile infection [Unknown]
